FAERS Safety Report 8761205 (Version 3)
Quarter: 2012Q4

REPORT INFORMATION
  Report Type: 
  Country: US (occurrence: US)
  Receive Date: 20120830
  Receipt Date: 20121226
  Transmission Date: 20130627
  Serious: Yes (Other)
  Sender: FDA-Public Use
  Company Number: US-BAYER-2012-088247

PATIENT
  Sex: Female

DRUGS (2)
  1. MIRENA [Suspect]
     Indication: CONTRACEPTION
     Dosage: 20 mcg/24hr, CONT
     Route: 015
     Dates: start: 20120810
  2. MIRENA [Suspect]
     Indication: CONTRACEPTION
     Dosage: 20 mcg/24hr, CONT
     Route: 015
     Dates: start: 20120810, end: 20120810

REACTIONS (7)
  - Post procedural haemorrhage [Not Recovered/Not Resolved]
  - Procedural pain [Recovered/Resolved]
  - Procedural pain [Recovered/Resolved]
  - Device difficult to use [None]
  - Chest pain [Not Recovered/Not Resolved]
  - Device issue [Not Recovered/Not Resolved]
  - Menstruation irregular [None]
